FAERS Safety Report 18718160 (Version 2)
Quarter: 2021Q1

REPORT INFORMATION
  Report Type: Report from Study
  Country: None (occurrence: US)
  Receive Date: 20210108
  Receipt Date: 20210215
  Transmission Date: 20210419
  Serious: Yes (Hospitalization)
  Sender: FDA-Public Use
  Company Number: US-ABBVIE-21K-163-3718191-00

PATIENT
  Sex: Female
  Weight: 59.02 kg

DRUGS (4)
  1. IMBRUVICA [Suspect]
     Active Substance: IBRUTINIB
     Route: 048
     Dates: start: 202011
  2. IMBRUVICA [Suspect]
     Active Substance: IBRUTINIB
     Indication: CHRONIC LYMPHOCYTIC LEUKAEMIA
     Route: 048
     Dates: start: 202010, end: 202011
  3. TARCEVA [Concomitant]
     Active Substance: ERLOTINIB HYDROCHLORIDE
     Indication: PRODUCT USED FOR UNKNOWN INDICATION
     Dosage: AT NIGHT
  4. HUMALOG [Concomitant]
     Active Substance: INSULIN LISPRO
     Indication: PRODUCT USED FOR UNKNOWN INDICATION
     Dosage: DURING THE DAY

REACTIONS (11)
  - Device signal transmission issue [Unknown]
  - Purpura [Recovering/Resolving]
  - Mobility decreased [Recovering/Resolving]
  - Diabetic ketoacidosis [Recovering/Resolving]
  - Medical device site haemorrhage [Recovering/Resolving]
  - Arthritis [Not Recovered/Not Resolved]
  - Device delivery system issue [Unknown]
  - Myalgia [Recovering/Resolving]
  - Neuropathy peripheral [Not Recovered/Not Resolved]
  - Faeces discoloured [Unknown]
  - Ligament sprain [Unknown]

NARRATIVE: CASE EVENT DATE: 2020
